FAERS Safety Report 21674621 (Version 4)
Quarter: 2024Q1

REPORT INFORMATION
  Report Type: Spontaneous
  Country: US (occurrence: US)
  Receive Date: 20221202
  Receipt Date: 20240208
  Transmission Date: 20240410
  Serious: Yes (Hospitalization)
  Sender: FDA-Public Use
  Company Number: US-SA-2022SA017489

PATIENT
  Age: 60 Year
  Sex: Female
  Weight: 153.29 kg

DRUGS (5)
  1. FABRAZYME [Suspect]
     Active Substance: AGALSIDASE BETA
     Indication: Fabry^s disease
     Dosage: 20 MG, QOW
     Route: 042
     Dates: start: 20140124
  2. FABRAZYME [Suspect]
     Active Substance: AGALSIDASE BETA
     Dosage: 105 MG, QOW
     Route: 042
  3. FABRAZYME [Suspect]
     Active Substance: AGALSIDASE BETA
     Dosage: 125 MG, Q10D
     Route: 042
     Dates: start: 201609
  4. FABRAZYME [Suspect]
     Active Substance: AGALSIDASE BETA
     Dosage: 20 MG, Q10D
     Route: 042
     Dates: start: 201609
  5. FABRAZYME [Suspect]
     Active Substance: AGALSIDASE BETA
     Dosage: 105 MG, Q10D
     Route: 042

REACTIONS (3)
  - Mental disorder [Unknown]
  - Weight increased [Unknown]
  - Inappropriate schedule of product administration [Unknown]
